FAERS Safety Report 8032164-5 (Version None)
Quarter: 2012Q1

REPORT INFORMATION
  Report Type: 
  Country: None (occurrence: None)
  Receive Date: 20120109
  Receipt Date: 20111101
  Transmission Date: 20120608
  Serious: Yes (Other)
  Sender: FDA-Public Use
  Company Number: PHHY2011JP114790

PATIENT
  Sex: Female

DRUGS (2)
  1. SANDOSTATIN LAR [Suspect]
     Indication: PANCREATIC CARCINOMA
     Dosage: 20 MG, UNK
     Route: 030
     Dates: start: 20111031
  2. SANDOSTATIN [Suspect]
     Indication: PANCREATIC CARCINOMA
     Dosage: 100 UG, UNK
     Route: 058

REACTIONS (2)
  - FAECES PALE [None]
  - DIARRHOEA [None]
